FAERS Safety Report 23910137 (Version 1)
Quarter: 2024Q2

REPORT INFORMATION
  Report Type: Spontaneous
  Country: GB (occurrence: GB)
  Receive Date: 20240528
  Receipt Date: 20240528
  Transmission Date: 20240715
  Serious: Yes (Death, Other)
  Sender: FDA-Public Use
  Company Number: None

PATIENT
  Age: 78 Year
  Sex: Female

DRUGS (13)
  1. CARBOPLATIN [Suspect]
     Active Substance: CARBOPLATIN
     Indication: Chemotherapy
     Route: 065
     Dates: start: 20231127
  2. LEVOTHYROXINE [Concomitant]
     Active Substance: LEVOTHYROXINE\LEVOTHYROXINE SODIUM
     Dosage: EACH MORNING?25 MICROGRAM + 50 MICROGRAM
  3. DOMPERIDONE [Concomitant]
     Active Substance: DOMPERIDONE
     Dosage: TIME INTERVAL: 0.33333333 DAYS: PRN
  4. ESTRIOL [Concomitant]
     Active Substance: ESTRIOL
     Dosage: USES EVERY FEW WEEKS
  5. POLYETHYLENE GLYCOL 3350\POTASSIUM CHLORIDE\SODIUM BICARBONATE\SODIUM [Concomitant]
     Active Substance: POLYETHYLENE GLYCOL 3350\POTASSIUM CHLORIDE\SODIUM BICARBONATE\SODIUM CHLORIDE
     Indication: Constipation
     Dosage: 1 - 4 SACHETS TWICE DAILY AS REQUIRED
  6. AVEENO [Concomitant]
     Active Substance: DIMETHICONE\HOMOSALATE\OCTINOXATE\OCTISALATE\TITANIUM DIOXIDE
     Dosage: AS DIRECTED
  7. DORZOLAMIDE [Concomitant]
     Active Substance: DORZOLAMIDE
     Dosage: TIME INTERVAL: AS NECESSARY: ONE DROP TO BE USED IN THE AFFECTED EYE (S)
  8. LANSOPRAZOLE [Concomitant]
     Active Substance: LANSOPRAZOLE
     Dosage: 1 OR 2 IN THE AM
  9. BIMATOPROST [Concomitant]
     Active Substance: BIMATOPROST
     Dosage: TIME INTERVAL: AS NECESSARY: TO BE USED IN THE AFFECTED EYE (S)
  10. PACLITAXEL [Suspect]
     Active Substance: PACLITAXEL
     Indication: Chemotherapy
     Route: 065
     Dates: start: 20231127
  11. ALVERINE [Concomitant]
     Active Substance: ALVERINE
     Dosage: 1 - 2 TABLETS THREE TIMES A DAY
  12. ONDANSETRON [Concomitant]
     Active Substance: ONDANSETRON
     Indication: Nausea
  13. COCODAMOL [Concomitant]
     Active Substance: ACETAMINOPHEN\CODEINE PHOSPHATE

REACTIONS (1)
  - Neutropenic sepsis [Fatal]
